FAERS Safety Report 14758748 (Version 1)
Quarter: 2018Q2

REPORT INFORMATION
  Report Type: Spontaneous
  Country: US (occurrence: US)
  Receive Date: 20180413
  Receipt Date: 20180413
  Transmission Date: 20180711
  Serious: No
  Sender: FDA-Public Use
  Company Number: US-DRREDDYS-USA/USA/17/0091449

PATIENT
  Age: 60 Year
  Sex: Female

DRUGS (3)
  1. AMOXICILLIN W/CLAVULANATE POTASSIUM 875 MG TABLETS [Suspect]
     Active Substance: AMOXICILLIN\CLAVULANATE POTASSIUM
     Indication: TOOTH INFECTION
     Dosage: 875/125 MG
     Route: 048
     Dates: start: 20170118, end: 20170130
  2. FLUTICASONE PROPIONATE. [Suspect]
     Active Substance: FLUTICASONE PROPIONATE
     Indication: SINUSITIS
     Dosage: 1 SPRAY BOTH NOSTRILS TWICE DAY
     Route: 065
     Dates: start: 20170118, end: 20170218
  3. MUPIROCIN. [Suspect]
     Active Substance: MUPIROCIN
     Indication: SINUSITIS
     Dosage: APPLY TO AREA THREE TIMES A DAY RIGHT NOSTRIL
     Route: 065
     Dates: start: 20170118, end: 20170228

REACTIONS (1)
  - Sinusitis [Recovering/Resolving]

NARRATIVE: CASE EVENT DATE: 201701
